FAERS Safety Report 18594727 (Version 1)
Quarter: 2020Q4

REPORT INFORMATION
  Report Type: Spontaneous
  Country: FR (occurrence: FR)
  Receive Date: 20201209
  Receipt Date: 20201209
  Transmission Date: 20210114
  Serious: Yes (Death)
  Sender: FDA-Public Use
  Company Number: FR-SUN PHARMACEUTICAL INDUSTRIES LTD-2020RR-270421

PATIENT
  Age: 63 Year
  Sex: Male

DRUGS (11)
  1. MIDAZOLAM. [Suspect]
     Active Substance: MIDAZOLAM
     Indication: FOOD POISONING
     Dosage: UNK, BOLUS AND CONTINUOUS INFUSION
     Route: 040
  2. ARGIPRESSIN [Suspect]
     Active Substance: ARGIPRESSIN
     Indication: FOOD POISONING
     Dosage: UNK
     Route: 065
  3. FIBRINOGEN [Suspect]
     Active Substance: FIBRINOGEN HUMAN
     Indication: FOOD POISONING
     Dosage: UNK
     Route: 065
  4. LEVETIRACETAM. [Suspect]
     Active Substance: LEVETIRACETAM
     Indication: FOOD POISONING
     Dosage: UNK
     Route: 065
  5. NORADRENALINE [Suspect]
     Active Substance: NOREPINEPHRINE
     Indication: FOOD POISONING
     Dosage: 1.2 MICROGRAM/KILOGRAM/MIN
     Route: 065
  6. ALBUMIN [Suspect]
     Active Substance: ALBUMIN HUMAN
     Indication: FOOD POISONING
     Dosage: UNK
     Route: 065
  7. SODIUM BICARBONATE. [Suspect]
     Active Substance: SODIUM BICARBONATE
     Indication: FOOD POISONING
     Dosage: UNK
     Route: 042
  8. CLONAZEPAM. [Suspect]
     Active Substance: CLONAZEPAM
     Indication: FOOD POISONING
     Dosage: UNK
     Route: 040
  9. HYDROCORTISONE. [Suspect]
     Active Substance: HYDROCORTISONE
     Indication: FOOD POISONING
     Dosage: UNK
     Route: 065
  10. ISOPRENALINE [Suspect]
     Active Substance: ISOPROTERENOL HYDROCHLORIDE
     Indication: FOOD POISONING
     Dosage: UNK
     Route: 065
  11. THIOPENTAL [Suspect]
     Active Substance: THIOPENTAL
     Indication: FOOD POISONING
     Dosage: UNK
     Route: 040

REACTIONS (1)
  - Drug ineffective [Fatal]
